FAERS Safety Report 6528562-9 (Version None)
Quarter: 2009Q4

REPORT INFORMATION
  Report Type: 
  Country: None (occurrence: None)
  Receive Date: 20091231
  Receipt Date: 20091214
  Transmission Date: 20100525
  Serious: Yes (Other)
  Sender: FDA-Public Use
  Company Number: THQ2009A05217

PATIENT
  Age: 86 Year
  Sex: Female

DRUGS (4)
  1. ACTOS [Suspect]
     Indication: TYPE 2 DIABETES MELLITUS
     Dosage: 15 MG, PER ORAL
     Route: 048
     Dates: start: 20090606
  2. ALOPURINOL (ALLOPURINOL) [Concomitant]
  3. PLAVIX [Concomitant]
  4. SERC    /00141802/ (BETHAHISTINE HYDROCHLORIDE) [Concomitant]

REACTIONS (3)
  - DEPRESSION [None]
  - FATIGUE [None]
  - HYPOGLYCAEMIA [None]
